FAERS Safety Report 4380742-7 (Version None)
Quarter: 2004Q2

REPORT INFORMATION
  Report Type: 
  Country: None (occurrence: None)
  Receive Date: 20040616
  Receipt Date: 20040602
  Transmission Date: 20050107
  Serious: Yes (Hospitalization)
  Sender: FDA-Public Use
  Company Number: S04-SWE-02566-01

PATIENT
  Age: 79 Year
  Sex: Female

DRUGS (2)
  1. CIPRALEX (ESCITALOPRAM) [Suspect]
     Indication: DEPRESSION
     Dosage: 10 MG QD PO
     Route: 048
     Dates: start: 20030101
  2. PLAVIX [Suspect]
     Indication: CEREBRAL ISCHAEMIA
     Dosage: 10 MG QD PO
     Route: 048
     Dates: start: 20010503, end: 20040318

REACTIONS (5)
  - ASTHENIA [None]
  - BALANCE DISORDER [None]
  - CEREBRAL HAEMORRHAGE [None]
  - HEADACHE [None]
  - VOMITING [None]
